FAERS Safety Report 16983700 (Version 2)
Quarter: 2019Q4

REPORT INFORMATION
  Report Type: Spontaneous
  Country: US (occurrence: US)
  Receive Date: 20191101
  Receipt Date: 20191205
  Transmission Date: 20200122
  Serious: No
  Sender: FDA-Public Use
  Company Number: US-009507513-1910USA009444

PATIENT
  Age: 35 Year
  Sex: Female

DRUGS (4)
  1. LETROZOLE. [Concomitant]
     Active Substance: LETROZOLE
     Indication: IN VITRO FERTILISATION
     Dosage: 2.5MG DAYS 1-5
  2. MENOPUR [Concomitant]
     Active Substance: FOLLITROPIN\LUTEINIZING HORMONE
     Indication: IN VITRO FERTILISATION
     Dosage: 75 IU DAYS 1-10
  3. GANIRELIX ACETATE INJECTION [Suspect]
     Active Substance: GANIRELIX ACETATE
     Indication: IN VITRO FERTILISATION
     Dosage: DAYS 6-9
  4. GONAL-F [Concomitant]
     Active Substance: FOLLITROPIN
     Indication: IN VITRO FERTILISATION
     Dosage: 300 IU DAYS 1-10

REACTIONS (1)
  - Maternal exposure before pregnancy [Recovered/Resolved]
